FAERS Safety Report 20207566 (Version 1)
Quarter: 2021Q4

REPORT INFORMATION
  Report Type: Spontaneous
  Country: US (occurrence: US)
  Receive Date: 20211220
  Receipt Date: 20211220
  Transmission Date: 20220303
  Serious: No
  Sender: FDA-Public Use
  Company Number: US-PFIZER INC-202101431192

PATIENT
  Age: 53 Year
  Sex: Male
  Weight: 77.596 kg

DRUGS (2)
  1. XELJANZ [Suspect]
     Active Substance: TOFACITINIB CITRATE
     Indication: Psoriatic arthropathy
     Dosage: 5 MG, 2X/DAY (MORNING AND AT BED TIME)
     Route: 048
     Dates: start: 20201124
  2. TRIAMCINOLONE ACETONIDE [Concomitant]
     Active Substance: TRIAMCINOLONE ACETONIDE
     Dosage: UNK

REACTIONS (4)
  - Decreased appetite [Unknown]
  - Dizziness [Unknown]
  - Eating disorder [Unknown]
  - Psoriasis [Unknown]
